FAERS Safety Report 13123708 (Version 1)
Quarter: 2017Q1

REPORT INFORMATION
  Report Type: Not Available
  Country: None (occurrence: None)
  Receive Date: 20170117
  Receipt Date: 20170117
  Transmission Date: 20170428
  Serious: Yes (Other)
  Sender: FDA-Public Use
  Company Number: --2017-UK-000004

PATIENT
  Age: 21 Year
  Sex: Female

DRUGS (1)
  1. METRONIDAZOLE BRAND UNSPECIFIED (VIVIMED) [Suspect]
     Active Substance: METRONIDAZOLE
     Indication: GASTROINTESTINAL BACTERIAL OVERGROWTH
     Dosage: 400 MG TWICE DAILY
     Route: 048

REACTIONS (4)
  - Pneumonia aspiration [Unknown]
  - Acute hepatic failure [Unknown]
  - Cerebrovascular accident [Unknown]
  - Dysphagia [Unknown]
